FAERS Safety Report 18677664 (Version 7)
Quarter: 2022Q1

REPORT INFORMATION
  Report Type: Report from Study
  Country: CH (occurrence: None)
  Receive Date: 20201229
  Receipt Date: 20220128
  Transmission Date: 20220424
  Serious: Yes (Hospitalization)
  Sender: FDA-Public Use
  Company Number: CH-ROCHE-2721038

PATIENT
  Age: 67 Year
  Sex: Male
  Weight: 58 kg

DRUGS (81)
  1. ATEZOLIZUMAB [Suspect]
     Active Substance: ATEZOLIZUMAB
     Indication: Non-small cell lung cancer
     Dosage: DATE OF MOST RECENT DOSE (1200 MG) OF BLINDED ATEZOLIZUMAB PRIOR TO AE/SAE ONSET: 23/SEP/2020.
     Route: 042
     Dates: start: 20200720
  2. CARBOPLATIN [Suspect]
     Active Substance: CARBOPLATIN
     Indication: Non-small cell lung cancer
     Dosage: DATE OF MOST RECENT DOSE OF CARBOPLATIN OF 640.2 MG PRIOR TO AE/SAE ONSET: 23/SEP/2020.?AUC OF 6 MG/
     Route: 042
     Dates: start: 20200720
  3. PACLITAXEL [Suspect]
     Active Substance: PACLITAXEL
     Indication: Non-small cell lung cancer
     Dosage: DATE OF MOST RECENT DOSE OF NAB-PACLITAXEL OF 170 MG PRIOR TO AE/SAE ONSET: 29/SEP/2020.
     Route: 042
     Dates: start: 20200720
  4. LACTATED RINGERS SOLUTION [Concomitant]
     Active Substance: CALCIUM CHLORIDE\POTASSIUM CHLORIDE\SODIUM CHLORIDE\SODIUM LACTATE
     Indication: Malnutrition
     Dates: start: 20201130, end: 20201201
  5. LACTATED RINGERS SOLUTION [Concomitant]
     Active Substance: CALCIUM CHLORIDE\POTASSIUM CHLORIDE\SODIUM CHLORIDE\SODIUM LACTATE
     Dates: start: 20210108, end: 20210108
  6. LACTATED RINGERS SOLUTION [Concomitant]
     Active Substance: CALCIUM CHLORIDE\POTASSIUM CHLORIDE\SODIUM CHLORIDE\SODIUM LACTATE
     Dates: start: 20201105, end: 20201106
  7. ISOPHANE INSULIN [Concomitant]
     Active Substance: INSULIN NOS
     Indication: Diabetes mellitus
     Dates: start: 20201211
  8. MINOCYCLINE HYDROCHLORIDE [Concomitant]
     Active Substance: MINOCYCLINE HYDROCHLORIDE
     Dates: start: 20201129, end: 20201129
  9. ATORVASTATIN [Concomitant]
     Active Substance: ATORVASTATIN
     Indication: Dyslipidaemia
  10. ATORVASTATIN [Concomitant]
     Active Substance: ATORVASTATIN
     Indication: Arteriosclerosis
  11. SPIRIVA [Concomitant]
     Active Substance: TIOTROPIUM BROMIDE MONOHYDRATE
  12. ASPIRIN [Concomitant]
     Active Substance: ASPIRIN
     Indication: Arteriosclerosis
  13. BEPANTHEN [Concomitant]
     Indication: Epistaxis
     Dates: start: 20200818
  14. BEPANTHEN [Concomitant]
     Dates: start: 20210108
  15. SODIUM BICARBONATE [Concomitant]
     Active Substance: SODIUM BICARBONATE
     Indication: Dysgeusia
     Dates: start: 20200817
  16. SODIUM BICARBONATE [Concomitant]
     Active Substance: SODIUM BICARBONATE
     Indication: Dysphagia
  17. LIDOCAINE [Concomitant]
     Active Substance: LIDOCAINE
     Indication: Dysphagia
     Dates: start: 20200817
  18. LIDOCAINE [Concomitant]
     Active Substance: LIDOCAINE
     Indication: Dysgeusia
  19. METFORMIN [Concomitant]
     Active Substance: METFORMIN HYDROCHLORIDE
     Indication: Diabetes mellitus
     Dates: start: 20200615
  20. CEFEPIME [Concomitant]
     Active Substance: CEFEPIME HYDROCHLORIDE
     Indication: Febrile neutropenia
     Dates: start: 20201003, end: 20201010
  21. CALCIUM GLUCONATE [Concomitant]
     Active Substance: CALCIUM GLUCONATE
     Indication: Hypocalcaemia
     Dates: start: 20201004, end: 20201011
  22. CALCIUM [Concomitant]
     Active Substance: CALCIUM
     Indication: Hypocalcaemia
     Dates: start: 20201004
  23. MAGNESIUM ASPARTATE HYDROCHLORIDE [Concomitant]
     Active Substance: MAGNESIUM ASPARTATE HYDROCHLORIDE
     Indication: Hypomagnesaemia
     Dates: start: 20201004
  24. MAGNESIUM ASPARTATE HYDROCHLORIDE [Concomitant]
     Active Substance: MAGNESIUM ASPARTATE HYDROCHLORIDE
     Dates: start: 20201103, end: 20201116
  25. POTASSIUM PHOSPHATE [Concomitant]
     Active Substance: POTASSIUM PHOSPHATE
     Indication: Hypokalaemia
     Dates: start: 20201004, end: 20201009
  26. KCL [Concomitant]
     Active Substance: POTASSIUM CHLORIDE
     Indication: Hypokalaemia
     Dates: start: 20201005, end: 20201014
  27. NYSTATIN [Concomitant]
     Active Substance: NYSTATIN
     Indication: Oral fungal infection
     Dates: start: 20201005, end: 20201014
  28. MORPHINE [Concomitant]
     Active Substance: MORPHINE
     Indication: Oral fungal infection
     Dates: start: 20201007, end: 20201010
  29. MORPHINE [Concomitant]
     Active Substance: MORPHINE
     Indication: Procedural pain
     Dates: start: 20201107, end: 20201110
  30. BETNOVATE [Concomitant]
     Active Substance: BETAMETHASONE
     Indication: Dermo-hypodermitis
     Dates: start: 20201011, end: 20201011
  31. DAFALGAN [Concomitant]
     Active Substance: ACETAMINOPHEN
     Indication: Oral fungal infection
     Dates: start: 20201003, end: 20201014
  32. DAFALGAN [Concomitant]
     Active Substance: ACETAMINOPHEN
     Dates: start: 20201021
  33. LYMAN [Concomitant]
     Dates: start: 20201005, end: 20201012
  34. OCULAC (SWITZERLAND) [Concomitant]
     Indication: Dry eye
     Dates: start: 20201008, end: 20201014
  35. HYALURONATE SODIUM [Concomitant]
     Active Substance: HYALURONATE SODIUM
     Indication: Dry eye
     Dates: start: 20201014
  36. FOLIC ACID [Concomitant]
     Active Substance: FOLIC ACID
     Indication: Anaemia
     Dates: start: 20201014
  37. TRAMADOL [Concomitant]
     Active Substance: TRAMADOL
     Dates: start: 20201022, end: 20201022
  38. HEPARIN [Concomitant]
     Active Substance: HEPARIN SODIUM
     Dates: start: 20201021, end: 20201022
  39. ENOXAPARIN SODIUM [Concomitant]
     Active Substance: ENOXAPARIN SODIUM
     Dates: start: 20201022, end: 20201022
  40. ENOXAPARIN SODIUM [Concomitant]
     Active Substance: ENOXAPARIN SODIUM
     Dates: start: 20201103, end: 20201112
  41. NOREPINEPHRINE [Concomitant]
     Active Substance: NOREPINEPHRINE
     Dates: start: 20201021, end: 20201022
  42. NOREPINEPHRINE [Concomitant]
     Active Substance: NOREPINEPHRINE
     Dates: start: 20201104, end: 20201107
  43. OXYCONTIN [Concomitant]
     Active Substance: OXYCODONE HYDROCHLORIDE
     Indication: Procedural pain
     Dates: start: 20201110, end: 20201112
  44. OXYCODONE HYDROCHLORIDE [Concomitant]
     Active Substance: OXYCODONE HYDROCHLORIDE
     Indication: Procedural pain
     Dates: start: 20201104, end: 20201105
  45. BUPIVACAINE HYDROCHLORIDE [Concomitant]
     Active Substance: BUPIVACAINE HYDROCHLORIDE
     Indication: Procedural pain
     Dates: start: 20201104, end: 20201109
  46. LACTITOL [Concomitant]
     Active Substance: LACTITOL
     Indication: Constipation
     Dates: start: 20201106, end: 20201113
  47. MOVICOL [Concomitant]
     Active Substance: POLYETHYLENE GLYCOL 3350\POTASSIUM CHLORIDE\SODIUM BICARBONATE\SODIUM CHLORIDE
     Indication: Constipation
     Dates: start: 20201107, end: 20201108
  48. MOVICOL [Concomitant]
     Active Substance: POLYETHYLENE GLYCOL 3350\POTASSIUM CHLORIDE\SODIUM BICARBONATE\SODIUM CHLORIDE
     Dates: start: 20201129, end: 20201214
  49. INSULIN NOS [Concomitant]
     Active Substance: INSULIN NOS
     Indication: Diabetes mellitus
     Dates: start: 20201112, end: 20201118
  50. ARANESP [Concomitant]
     Active Substance: DARBEPOETIN ALFA
     Indication: Anaemia
     Dates: start: 20201204, end: 20201204
  51. ARANESP [Concomitant]
     Active Substance: DARBEPOETIN ALFA
     Dates: start: 20201211, end: 20201211
  52. CALCIPARINE [Concomitant]
     Active Substance: HEPARIN CALCIUM
     Dates: start: 20201129, end: 20201221
  53. CALCIPARINE [Concomitant]
     Active Substance: HEPARIN CALCIUM
     Dates: start: 20201230, end: 20210115
  54. OXYGEN [Concomitant]
     Active Substance: OXYGEN
     Dates: start: 20201116
  55. TEMESTA [Concomitant]
     Dates: start: 20201107, end: 20201107
  56. TEMESTA [Concomitant]
     Dates: start: 20201208, end: 20201208
  57. PANTOZOL [Concomitant]
     Active Substance: PANTOPRAZOLE SODIUM
     Dates: start: 20201129, end: 20201130
  58. PANTOZOL [Concomitant]
     Active Substance: PANTOPRAZOLE SODIUM
     Dates: start: 20201105, end: 20201116
  59. PANTOZOL [Concomitant]
     Active Substance: PANTOPRAZOLE SODIUM
     Dates: start: 20201129, end: 20201130
  60. LASIX [Concomitant]
     Active Substance: FUROSEMIDE
     Indication: Cardiac failure
     Dates: start: 20201109, end: 20201109
  61. LASIX [Concomitant]
     Active Substance: FUROSEMIDE
     Indication: Oedema peripheral
     Dates: start: 20201201, end: 20201204
  62. LASIX [Concomitant]
     Active Substance: FUROSEMIDE
     Indication: Pulmonary oedema
     Dates: start: 20200101, end: 20210101
  63. TORSEMIDE [Concomitant]
     Active Substance: TORSEMIDE
     Indication: Oedema peripheral
     Dates: start: 20201204
  64. DIALVIT [Concomitant]
     Indication: Malnutrition
     Dates: start: 20201214
  65. DIALVIT [Concomitant]
     Dates: start: 20210104
  66. AMLODIPINE [Concomitant]
     Active Substance: AMLODIPINE BESYLATE
     Indication: Hypertension
     Dates: start: 20201207
  67. ENALAPRIL [Concomitant]
     Active Substance: ENALAPRIL
     Indication: Hypertension
     Dates: start: 20201207, end: 20201221
  68. ESOMEPRAZOLE [Concomitant]
     Active Substance: ESOMEPRAZOLE
     Dates: start: 20201201, end: 20201202
  69. ESOMEPRAZOLE [Concomitant]
     Active Substance: ESOMEPRAZOLE
     Dates: start: 20201230
  70. SODIUM PICOSULFATE [Concomitant]
     Active Substance: SODIUM PICOSULFATE
     Indication: Constipation
     Dates: start: 20201129, end: 20201130
  71. CLOBETASOL [Concomitant]
     Active Substance: CLOBETASOL
     Indication: Purpura
     Dates: start: 20201202
  72. NOVORAPID [Concomitant]
     Active Substance: INSULIN ASPART
     Indication: Diabetes mellitus
     Dates: start: 20201210
  73. MELATONIN [Concomitant]
     Active Substance: MELATONIN
     Indication: Insomnia
     Dates: start: 20201229, end: 20201229
  74. RINOSEDIN [Concomitant]
     Indication: Epistaxis
     Dates: start: 20210107
  75. ROCALTROL [Concomitant]
     Active Substance: CALCITRIOL
     Indication: Malnutrition
     Dates: start: 20210104
  76. PHOSCAP [Concomitant]
     Dates: start: 20210115
  77. NITROGLYCERIN [Concomitant]
     Active Substance: NITROGLYCERIN
     Indication: Hypertension
     Dates: start: 20210101, end: 20210103
  78. ISOSORBIDE DINITRATE [Concomitant]
     Active Substance: ISOSORBIDE DINITRATE
     Indication: Hypertension
     Dates: start: 20210101, end: 20210101
  79. ENALAPRIL [Concomitant]
     Active Substance: ENALAPRIL
     Indication: Hypertension
     Dates: start: 20210101, end: 20210105
  80. PHYSIOTENS MITE [Concomitant]
     Indication: Hypertension
     Dosage: HYPERTENSION
     Dates: start: 20210102
  81. BONIVA [Concomitant]
     Active Substance: IBANDRONATE SODIUM
     Indication: Neuropathy peripheral
     Dates: start: 20210202

REACTIONS (4)
  - Chronic kidney disease [Not Recovered/Not Resolved]
  - Pneumonia [Recovered/Resolved]
  - Atrial fibrillation [Not Recovered/Not Resolved]
  - Vasculitis [Not Recovered/Not Resolved]

NARRATIVE: CASE EVENT DATE: 20201106
